FAERS Safety Report 24689121 (Version 1)
Quarter: 2024Q4

REPORT INFORMATION
  Report Type: Spontaneous
  Country: CN (occurrence: CN)
  Receive Date: 20241203
  Receipt Date: 20241203
  Transmission Date: 20250114
  Serious: Yes (Hospitalization, Other)
  Sender: ROCHE
  Company Number: CN-ROCHE-10000141894

PATIENT
  Sex: Female

DRUGS (8)
  1. TRASTUZUMAB EMTANSINE [Suspect]
     Active Substance: TRASTUZUMAB EMTANSINE
     Indication: Breast cancer
     Dosage: 3.6 MG/KG
     Route: 042
     Dates: start: 20240307
  2. TRASTUZUMAB EMTANSINE [Suspect]
     Active Substance: TRASTUZUMAB EMTANSINE
     Dosage: 3.6 MG/KG?(PLANNED DOSE 205.2 MG)
     Route: 042
     Dates: start: 20240329
  3. TRASTUZUMAB EMTANSINE [Suspect]
     Active Substance: TRASTUZUMAB EMTANSINE
     Dosage: 3.6 MG/KG?(PLANNED DOSE 201.6 MG)
     Route: 042
     Dates: start: 20240419
  4. TRASTUZUMAB EMTANSINE [Suspect]
     Active Substance: TRASTUZUMAB EMTANSINE
     Dosage: 3.6 MG/KG ?PLANNED DOSE 205.2 MG
     Route: 042
     Dates: start: 20240510
  5. TRASTUZUMAB EMTANSINE [Suspect]
     Active Substance: TRASTUZUMAB EMTANSINE
     Dosage: 3.6 MG/KG ?PLANNED DOSE 205.2 MG
     Route: 042
     Dates: start: 20240603
  6. TRASTUZUMAB EMTANSINE [Suspect]
     Active Substance: TRASTUZUMAB EMTANSINE
     Dosage: 3.0 MG/KG,
     Route: 042
     Dates: start: 20240626
  7. POLYETHYLENE GLYCOL [Concomitant]
     Active Substance: POLYETHYLENE GLYCOL
     Indication: Injury corneal
     Dates: start: 20240416
  8. Recombinant Bovine Basic Fibroblast Growth Factor Eye-Gel [Concomitant]
     Indication: Injury corneal
     Dates: start: 20240528

REACTIONS (7)
  - Metastases to bone [Unknown]
  - Pulmonary mass [Unknown]
  - Mediastinal mass [Unknown]
  - Liver disorder [Unknown]
  - Rib fracture [Unknown]
  - Thyroid neoplasm [Unknown]
  - Neutrophil count decreased [Recovered/Resolved]

NARRATIVE: CASE EVENT DATE: 20240531
